FAERS Safety Report 4859987-5 (Version None)
Quarter: 2005Q4

REPORT INFORMATION
  Report Type: 
  Country: None (occurrence: None)
  Receive Date: 20051219
  Receipt Date: 20050829
  Transmission Date: 20060501
  Serious: Yes (Death, Hospitalization, Other)
  Sender: FDA-Public Use
  Company Number: US-MERCK-0508USA04658

PATIENT
  Age: 66 Year
  Sex: Female
  Weight: 64 kg

DRUGS (2)
  1. VIOXX [Suspect]
     Indication: ARTHRALGIA
     Route: 048
  2. EXCEDRIN (MIGRAINE) [Concomitant]
     Route: 065

REACTIONS (3)
  - DEATH [None]
  - PANCREATITIS ACUTE [None]
  - RENAL FAILURE [None]
